FAERS Safety Report 22933496 (Version 5)
Quarter: 2023Q4

REPORT INFORMATION
  Report Type: Report from Study
  Country: US (occurrence: US)
  Receive Date: 20230912
  Receipt Date: 20231122
  Transmission Date: 20240110
  Serious: Yes (Other)
  Sender: FDA-Public Use
  Company Number: US-ABBVIE-5380167

PATIENT
  Age: 76 Year
  Sex: Female
  Weight: 66 kg

DRUGS (9)
  1. HUMIRA [Suspect]
     Active Substance: ADALIMUMAB
     Indication: Rheumatoid arthritis
     Dosage: FORM STRENGTH: 40 MG?LAST ADMIN DATE: 2023
     Route: 058
     Dates: start: 20231004
  2. HUMIRA [Suspect]
     Active Substance: ADALIMUMAB
     Dosage: FORM STRENGTH:40 MG
     Route: 058
     Dates: start: 202208, end: 20230816
  3. HUMIRA [Suspect]
     Active Substance: ADALIMUMAB
     Dosage: FORM STRENGTH: 40 MG?FIRST ADMIN DATE 2023
     Route: 058
  4. LEVOTHYROXINE [Concomitant]
     Active Substance: LEVOTHYROXINE
     Indication: Thyroid disorder
  5. DULOXETINE [Concomitant]
     Active Substance: DULOXETINE
     Indication: Antidepressant therapy
  6. SIMVASTATIN [Concomitant]
     Active Substance: SIMVASTATIN
     Indication: Blood cholesterol increased
  7. PANTOPRAZOLE [Concomitant]
     Active Substance: PANTOPRAZOLE
     Indication: Gastrooesophageal reflux disease
  8. HYDROCHLOROTHIAZIDE [Concomitant]
     Active Substance: HYDROCHLOROTHIAZIDE
     Indication: Hypertension
  9. NURTEC ODT [Suspect]
     Active Substance: RIMEGEPANT SULFATE
     Indication: Pain
     Route: 065

REACTIONS (13)
  - Haemangioma [Not Recovered/Not Resolved]
  - Malaise [Recovering/Resolving]
  - Dry eye [Recovering/Resolving]
  - Migraine [Recovering/Resolving]
  - Eye disorder [Not Recovered/Not Resolved]
  - Precancerous skin lesion [Recovered/Resolved]
  - Burning sensation [Not Recovered/Not Resolved]
  - Influenza [Unknown]
  - Blood iron decreased [Recovered/Resolved]
  - Osteoporosis [Unknown]
  - Nerve compression [Unknown]
  - Fibromyalgia [Unknown]
  - Seasonal affective disorder [Unknown]

NARRATIVE: CASE EVENT DATE: 20221001
